FAERS Safety Report 13455011 (Version 2)
Quarter: 2017Q2

REPORT INFORMATION
  Report Type: Spontaneous
  Country: CH (occurrence: CH)
  Receive Date: 20170418
  Receipt Date: 20170425
  Transmission Date: 20170830
  Serious: Yes (Death, Hospitalization, Other)
  Sender: FDA-Public Use
  Company Number: CH-PFIZER INC-2017164625

PATIENT
  Age: 83 Year
  Sex: Male

DRUGS (14)
  1. LYRICA [Suspect]
     Active Substance: PREGABALIN
     Dosage: 50 MG, DAILY
     Route: 048
     Dates: start: 20170220, end: 20170220
  2. ASPIRIN CARDIO [Concomitant]
     Active Substance: ASPIRIN
     Dosage: UNK
     Dates: end: 20170228
  3. ZOLPIDEM TARTRATE. [Suspect]
     Active Substance: ZOLPIDEM TARTRATE
     Dosage: 10 MG, SINGLE
     Route: 048
     Dates: start: 20170222, end: 20170222
  4. TEMGESIC [Suspect]
     Active Substance: BUPRENORPHINE HYDROCHLORIDE
     Dosage: 0.1 MG, 3X/24HOURS
     Route: 058
     Dates: start: 20170228, end: 20170303
  5. ZANIDIP [Concomitant]
     Active Substance: LERCANIDIPINE HYDROCHLORIDE
     Indication: HYPERTENSION
     Dosage: 5 MG, 1X/DAY
     Route: 048
     Dates: end: 20161229
  6. ZOLPIDEM TARTRATE. [Suspect]
     Active Substance: ZOLPIDEM TARTRATE
     Dosage: 10 MG, SINGLE
     Route: 048
     Dates: start: 20170226, end: 20170226
  7. TEMESTA [Suspect]
     Active Substance: LORAZEPAM
     Dosage: 1 MG, 2X/DAY
     Route: 048
     Dates: start: 20170228, end: 20170228
  8. BILOL [Concomitant]
     Active Substance: BISOPROLOL
     Indication: HYPERTENSION
     Dosage: 7.5 MG, 1X/DAY
     Route: 048
     Dates: end: 20170228
  9. ZOLPIDEM TARTRATE. [Suspect]
     Active Substance: ZOLPIDEM TARTRATE
     Dosage: 10 MG, SINGLE
     Route: 048
     Dates: start: 20170227, end: 20170227
  10. QUETIAPIN [Suspect]
     Active Substance: QUETIAPINE
     Dosage: UNK
     Route: 048
     Dates: start: 20170206, end: 20170208
  11. METFORMINE [Concomitant]
     Active Substance: METFORMIN HYDROCHLORIDE
     Indication: DIABETES MELLITUS
     Dosage: 500 MG, 2X/DAY
     Route: 048
     Dates: end: 20170228
  12. XARELTO [Suspect]
     Active Substance: RIVAROXABAN
     Indication: ATRIAL FIBRILLATION
     Dosage: 20 MG, 1X/DAY
     Route: 048
     Dates: end: 20161229
  13. CYMBALTA [Suspect]
     Active Substance: DULOXETINE HYDROCHLORIDE
     Indication: NEURALGIA
     Dosage: 30 MG, 1X/DAY
     Route: 048
     Dates: start: 20170222, end: 20170223
  14. CO-AMOXICLAV [Concomitant]
     Active Substance: AMOXICILLIN\CLAVULANIC ACID
     Indication: PNEUMONIA ASPIRATION
     Dosage: UNK
     Dates: start: 201702, end: 201702

REACTIONS (10)
  - Pneumonia aspiration [Fatal]
  - Haemorrhagic stroke [Fatal]
  - Scrotal haematoma [Unknown]
  - Basal ganglia haematoma [Fatal]
  - Abnormal behaviour [Unknown]
  - Aggression [Unknown]
  - Acute kidney injury [Unknown]
  - Altered state of consciousness [Recovering/Resolving]
  - Muscle spasticity [Unknown]
  - Sensorimotor disorder [Unknown]

NARRATIVE: CASE EVENT DATE: 20161229
